FAERS Safety Report 5612234-9 (Version None)
Quarter: 2008Q1

REPORT INFORMATION
  Report Type: 
  Country: None (occurrence: None)
  Receive Date: 20080111
  Receipt Date: 20070727
  Transmission Date: 20080703
  Serious: Yes (Other)
  Sender: FDA-Public Use
  Company Number: HQWYE696516APR03

PATIENT
  Age: 48 Year
  Sex: Female

DRUGS (2)
  1. PREMPRO [Suspect]
     Indication: HORMONE REPLACEMENT THERAPY
     Dosage: 1TABLET DAILY;0.625MG/UNSPECIFIED, ORAL
     Route: 048
     Dates: start: 20000719
  2. PREFEST [Suspect]
     Dosage: ORAL
     Route: 048
     Dates: start: 20020116

REACTIONS (1)
  - BREAST CANCER FEMALE [None]
